FAERS Safety Report 8042067-8 (Version None)
Quarter: 2012Q1

REPORT INFORMATION
  Report Type: 
  Country: None (occurrence: None)
  Receive Date: 20120112
  Receipt Date: 20111228
  Transmission Date: 20120608
  Serious: Yes (Other)
  Sender: FDA-Public Use
  Company Number: ES-CELGENEUS-144-50794-11123673

PATIENT
  Age: 68 Year
  Sex: Male

DRUGS (3)
  1. ANTIBIOTICS [Concomitant]
     Route: 065
     Dates: start: 20110601, end: 20110701
  2. VIDAZA [Suspect]
     Route: 050
     Dates: start: 20110510, end: 20111027
  3. RED BLOOD CELLS [Concomitant]
     Route: 041
     Dates: start: 20110501, end: 20111001

REACTIONS (3)
  - VOMITING [None]
  - TOXICITY TO VARIOUS AGENTS [None]
  - ANAEMIA [None]
